FAERS Safety Report 21447202 (Version 2)
Quarter: 2022Q4

REPORT INFORMATION
  Report Type: Spontaneous
  Country: US (occurrence: US)
  Receive Date: 20221012
  Receipt Date: 20221125
  Transmission Date: 20230113
  Serious: No
  Sender: FDA-Public Use
  Company Number: US-BIOGEN-2022BI01160974

PATIENT
  Sex: Female

DRUGS (3)
  1. TECFIDERA [Suspect]
     Active Substance: DIMETHYL FUMARATE
     Indication: Product used for unknown indication
     Route: 050
  2. TECFIDERA [Suspect]
     Active Substance: DIMETHYL FUMARATE
     Dosage: TWO 240MG DIMETHYL FUMARATE CAPSULES IN THE MORNING ONLY INSTEAD OF TAKING ONE 240MG CAPSULE IN T...
     Route: 050
  3. GABAPENTIN [Concomitant]
     Active Substance: GABAPENTIN
     Route: 050

REACTIONS (4)
  - Intentional product misuse [Unknown]
  - Pain in extremity [Not Recovered/Not Resolved]
  - Mobility decreased [Unknown]
  - Insomnia [Recovered/Resolved]
